FAERS Safety Report 7391871-8 (Version None)
Quarter: 2011Q2

REPORT INFORMATION
  Report Type: 
  Country: None (occurrence: None)
  Receive Date: 20110404
  Receipt Date: 20110325
  Transmission Date: 20111010
  Serious: Yes (Other)
  Sender: FDA-Public Use
  Company Number: JP-ROCHE-768834

PATIENT
  Sex: Female

DRUGS (20)
  1. TOCILIZUMAB [Suspect]
     Route: 042
     Dates: start: 20090817, end: 20090817
  2. TOCILIZUMAB [Suspect]
     Route: 042
     Dates: start: 20090914, end: 20090914
  3. PREDNISOLONE [Concomitant]
     Dosage: PERORAL AGENT
     Route: 048
     Dates: end: 20090329
  4. GASTER [Concomitant]
     Dosage: PERORAL AGENT
     Route: 048
  5. TOCILIZUMAB [Suspect]
     Route: 042
     Dates: start: 20090105, end: 20090105
  6. TOCILIZUMAB [Suspect]
     Route: 042
     Dates: start: 20090302, end: 20090302
  7. TOCILIZUMAB [Suspect]
     Route: 042
     Dates: start: 20090622, end: 20090622
  8. ISONIAZID [Concomitant]
     Dosage: PERORAL AGENT
     Route: 048
     Dates: start: 20081106
  9. PREDNISOLONE [Concomitant]
     Route: 048
     Dates: start: 20090428
  10. TOCILIZUMAB [Suspect]
     Route: 042
     Dates: start: 20081204, end: 20081204
  11. CELECOXIB [Concomitant]
     Route: 048
     Dates: start: 20090329
  12. TOCILIZUMAB [Suspect]
     Route: 042
     Dates: start: 20090202, end: 20090202
  13. TOCILIZUMAB [Suspect]
     Route: 042
     Dates: start: 20090428, end: 20090428
  14. TOCILIZUMAB [Suspect]
     Route: 042
     Dates: start: 20090721, end: 20090721
  15. CELECOXIB [Concomitant]
     Dosage: PERORAL AGENT
     Route: 048
     Dates: start: 20090330
  16. TOCILIZUMAB [Suspect]
     Route: 042
     Dates: start: 20091102, end: 20091102
  17. PREDNISOLONE [Concomitant]
     Route: 048
     Dates: start: 20090330, end: 20090427
  18. TOCILIZUMAB [Suspect]
     Indication: RHEUMATOID ARTHRITIS
     Route: 042
     Dates: start: 20081106, end: 20081106
  19. TOCILIZUMAB [Suspect]
     Route: 042
     Dates: start: 20090330, end: 20090330
  20. TOCILIZUMAB [Suspect]
     Route: 042
     Dates: start: 20090526, end: 20090526

REACTIONS (1)
  - UPPER LIMB FRACTURE [None]
